FAERS Safety Report 21009825 (Version 1)
Quarter: 2022Q2

REPORT INFORMATION
  Report Type: Spontaneous
  Country: US (occurrence: None)
  Receive Date: 20220626
  Receipt Date: 20220626
  Transmission Date: 20220720
  Serious: Yes (Other)
  Sender: FDA-Public Use
  Company Number: None

PATIENT
  Sex: 0

DRUGS (1)
  1. LATANOPROST [Suspect]
     Active Substance: LATANOPROST
     Indication: Glaucoma
     Dosage: OTHER QUANTITY : 1 DROP(S)?FREQUENCY : AT BEDTIME?
     Route: 047
     Dates: start: 20220510, end: 20220624

REACTIONS (5)
  - Paraesthesia [None]
  - Peripheral swelling [None]
  - Arthralgia [None]
  - Arthritis [None]
  - Expired product administered [None]

NARRATIVE: CASE EVENT DATE: 20220625
